FAERS Safety Report 9843203 (Version 2)
Quarter: 2014Q2

REPORT INFORMATION
  Report Type: Spontaneous
  Country: US (occurrence: US)
  Receive Date: 20140124
  Receipt Date: 20140502
  Transmission Date: 20141212
  Serious: Yes (Death, Other)
  Sender: FDA-Public Use
  Company Number: US-GILEAD-2014-0092861

PATIENT
  Sex: Female

DRUGS (2)
  1. LETAIRIS [Suspect]
     Indication: PULMONARY HYPERTENSION
     Dosage: 5 MG, UNK
     Route: 065
     Dates: start: 20131231, end: 20140113
  2. LETAIRIS [Suspect]
     Indication: PULMONARY VENO-OCCLUSIVE DISEASE

REACTIONS (2)
  - Right ventricular failure [Fatal]
  - Pulmonary veno-occlusive disease [Fatal]
